FAERS Safety Report 4984011-3 (Version None)
Quarter: 2006Q1

REPORT INFORMATION
  Report Type: 
  Country: None (occurrence: None)
  Receive Date: 20060301
  Receipt Date: 20060113
  Transmission Date: 20060701
  Serious: No
  Sender: FDA-Public Use
  Company Number: S06-USA-00183-01

PATIENT
  Age: 76 Year
  Sex: Female

DRUGS (2)
  1. NAMENDA [Suspect]
     Indication: DEMENTIA ALZHEIMER'S TYPE
     Dosage: 5 MG QD PO
     Route: 048
     Dates: start: 20060109
  2. MANY MEDICATIONS (NOS) [Concomitant]

REACTIONS (2)
  - FEELING ABNORMAL [None]
  - LETHARGY [None]
